FAERS Safety Report 5096239-5 (Version None)
Quarter: 2006Q3

REPORT INFORMATION
  Report Type: 
  Country: None (occurrence: None)
  Receive Date: 20060830
  Receipt Date: 20060818
  Transmission Date: 20061208
  Serious: Yes (Hospitalization, Disabling, Other)
  Sender: FDA-Public Use
  Company Number: HQWYE715118AUG06

PATIENT
  Age: 84 Year
  Sex: Female

DRUGS (6)
  1. CORDARONE [Suspect]
     Dosage: 100 MG 1X PER 1 DAY, ORAL/FOR A LONG TIME
     Route: 048
     Dates: end: 20060622
  2. SINEMET [Concomitant]
  3. IXPRIM (PARACETAMOL/TRAMADOL HYDROCHLORIDE) [Concomitant]
  4. LEVOTHYROXINE SODIUM [Concomitant]
  5. TANGANIL (ETHANOLAMINE ACETYLLEUCINATE) [Concomitant]
  6. PANTOPRAZOLE SODIUM [Concomitant]

REACTIONS (5)
  - ATROPHY [None]
  - LOSS OF CONSCIOUSNESS [None]
  - MALAISE [None]
  - NERVOUS SYSTEM DISORDER [None]
  - PARKINSONISM [None]
